FAERS Safety Report 15916716 (Version 2)
Quarter: 2019Q1

REPORT INFORMATION
  Report Type: Spontaneous
  Country: US (occurrence: US)
  Receive Date: 20190205
  Receipt Date: 20190206
  Transmission Date: 20190417
  Serious: No
  Sender: FDA-Public Use
  Company Number: US-TEVA-2019-US-996342

PATIENT
  Sex: Female

DRUGS (1)
  1. QUETIAPINE FUMARATE TEVA [Suspect]
     Active Substance: QUETIAPINE FUMARATE
     Indication: SLEEP DISORDER

REACTIONS (2)
  - Drug ineffective [Unknown]
  - Product quality issue [Unknown]
